FAERS Safety Report 14556093 (Version 1)
Quarter: 2018Q1

REPORT INFORMATION
  Report Type: Spontaneous
  Country: RO (occurrence: RO)
  Receive Date: 20180221
  Receipt Date: 20180221
  Transmission Date: 20180509
  Serious: Yes (Other)
  Sender: FDA-Public Use
  Company Number: RO-ROCHE-2070764

PATIENT
  Age: 54 Year
  Sex: Female

DRUGS (5)
  1. MABTHERA [Suspect]
     Active Substance: RITUXIMAB
     Indication: DIFFUSE LARGE B-CELL LYMPHOMA
     Route: 065
     Dates: end: 201704
  2. VINCRISTINE [Concomitant]
     Active Substance: VINCRISTINE
  3. PREDNISOLONE. [Concomitant]
     Active Substance: PREDNISOLONE
  4. CYCLOPHOSPHAMIDE. [Concomitant]
     Active Substance: CYCLOPHOSPHAMIDE
     Indication: DIFFUSE LARGE B-CELL LYMPHOMA
     Route: 065
     Dates: start: 201704
  5. DOXORUBICIN [Concomitant]
     Active Substance: DOXORUBICIN

REACTIONS (2)
  - Nervous system disorder [Unknown]
  - Paraplegia [Unknown]

NARRATIVE: CASE EVENT DATE: 201710
